FAERS Safety Report 7554824 (Version 3)
Quarter: 2014Q2

REPORT INFORMATION
  Report Type: Report from Study
  Country: DE (occurrence: DE)
  Receive Date: 20100826
  Receipt Date: 20140429
  Transmission Date: 20141212
  Serious: Yes (Hospitalization)
  Sender: FDA-Public Use
  Company Number: DE-ROCHE-721073

PATIENT
  Age: 44 Year
  Sex: Female
  Weight: 89 kg

DRUGS (2)
  1. CAPECITABINE [Suspect]
     Indication: BREAST CANCER METASTATIC
     Dosage: LAST DOSE ADMINISTERED PRIOR TO SAE: 2000 MG ON 26/JUL/2010
     Route: 048
     Dates: start: 20100706
  2. LAPATINIB [Suspect]
     Indication: BREAST CANCER METASTATIC
     Dosage: LAST DOSE ADMINISTERED PRIOR TO SAE: 1250MG ON 26/JUL/2010
     Route: 048
     Dates: start: 20100706

REACTIONS (1)
  - Asthenia [Recovered/Resolved]
